FAERS Safety Report 6417954-4 (Version None)
Quarter: 2009Q4

REPORT INFORMATION
  Report Type: 
  Country: None (occurrence: None)
  Receive Date: 20091028
  Receipt Date: 20091026
  Transmission Date: 20100525
  Serious: Yes (Hospitalization)
  Sender: FDA-Public Use
  Company Number: ES-BAYER-200936514GPV

PATIENT
  Age: 79 Year
  Sex: Male

DRUGS (5)
  1. ADIRO [Suspect]
     Indication: PROPHYLAXIS
     Dosage: TOTAL DAILY DOSE: 100 MG  UNIT DOSE: 100 MG
     Route: 048
     Dates: start: 20080101, end: 20090529
  2. LOSARTAN [Suspect]
     Indication: HYPERTENSION
     Dosage: TOTAL DAILY DOSE: 50 MG  UNIT DOSE: 50 MG
     Route: 048
     Dates: start: 20090520, end: 20090529
  3. DIAMICRON [Suspect]
     Indication: TYPE 2 DIABETES MELLITUS
     Route: 048
     Dates: start: 20090520, end: 20090529
  4. DOXAZOSINA [Concomitant]
     Route: 048
     Dates: start: 20090101, end: 20090520
  5. EUCREAS [Concomitant]
     Dosage: AS USED: 50/850 MG
     Route: 048
     Dates: start: 20090101, end: 20090520

REACTIONS (1)
  - ANAEMIA HAEMOLYTIC AUTOIMMUNE [None]
